FAERS Safety Report 17483708 (Version 2)
Quarter: 2020Q1

REPORT INFORMATION
  Report Type: Spontaneous
  Country: IT (occurrence: IT)
  Receive Date: 20200302
  Receipt Date: 20200311
  Transmission Date: 20200409
  Serious: Yes (Hospitalization)
  Sender: FDA-Public Use
  Company Number: NVSC2019IT047289

PATIENT
  Age: 55 Year
  Sex: Female

DRUGS (14)
  1. DOXORUBICIN [Suspect]
     Active Substance: DOXORUBICIN
     Indication: METASTASES TO BONE
  2. MITOTANE [Suspect]
     Active Substance: MITOTANE
     Indication: METASTASES TO LUNG
     Route: 065
  3. ETOPOSIDE. [Suspect]
     Active Substance: ETOPOSIDE
     Indication: METASTASES TO BONE
  4. CIPROFLOXACIN. [Suspect]
     Active Substance: CIPROFLOXACIN
     Indication: ANTIBIOTIC THERAPY
     Dosage: UNK
     Route: 050
     Dates: start: 2017, end: 2017
  5. MITOTANE [Suspect]
     Active Substance: MITOTANE
     Indication: ADRENAL GLAND CANCER
     Dosage: UNK
     Route: 065
     Dates: start: 201703
  6. ETOPOSIDE. [Suspect]
     Active Substance: ETOPOSIDE
     Indication: METASTASES TO LIVER
  7. ETOPOSIDE. [Suspect]
     Active Substance: ETOPOSIDE
     Indication: ADRENAL GLAND CANCER
     Dosage: UNK
     Route: 065
     Dates: start: 201703
  8. DOXORUBICIN [Suspect]
     Active Substance: DOXORUBICIN
     Indication: ADRENAL GLAND CANCER
     Dosage: EDP REGIMEN
     Route: 065
     Dates: start: 201703
  9. ETOPOSIDE. [Suspect]
     Active Substance: ETOPOSIDE
     Indication: METASTASES TO LUNG
  10. CISPLATIN. [Suspect]
     Active Substance: CISPLATIN
     Indication: ADRENAL GLAND CANCER
     Dosage: EDP REGIMEN
     Route: 065
     Dates: start: 201703
  11. CISPLATIN. [Suspect]
     Active Substance: CISPLATIN
     Indication: METASTASES TO BONE
  12. CIPROFLOXACIN. [Suspect]
     Active Substance: CIPROFLOXACIN
     Indication: DEVICE RELATED INFECTION
  13. DOXORUBICIN [Suspect]
     Active Substance: DOXORUBICIN
     Indication: METASTASES TO LUNG
  14. MITOTANE [Suspect]
     Active Substance: MITOTANE
     Indication: METASTASES TO BONE

REACTIONS (6)
  - Bacteraemia [Recovered/Resolved]
  - Pyrexia [Recovered/Resolved]
  - Pyrexia [Recovered/Resolved]
  - Product use in unapproved indication [Unknown]
  - Device related infection [Recovered/Resolved]
  - Infusion site reaction [Recovering/Resolving]

NARRATIVE: CASE EVENT DATE: 2017
